FAERS Safety Report 10254673 (Version 1)
Quarter: 2014Q2

REPORT INFORMATION
  Report Type: Spontaneous
  Country: US (occurrence: US)
  Receive Date: 20140624
  Receipt Date: 20140624
  Transmission Date: 20141212
  Serious: Yes (Life-Threatening, Hospitalization)
  Sender: FDA-Public Use
  Company Number: US-ALVOGEN-2014AL000856

PATIENT
  Age: 15 Year
  Sex: Male
  Weight: 56.7 kg

DRUGS (2)
  1. NAPROXEN [Suspect]
     Indication: PRODUCT USED FOR UNKNOWN INDICATION
  2. IBUPROFEN [Suspect]
     Indication: PRODUCT USED FOR UNKNOWN INDICATION

REACTIONS (7)
  - Metabolic acidosis [Recovering/Resolving]
  - Adrenal insufficiency [Recovering/Resolving]
  - Hypovolaemic shock [Recovering/Resolving]
  - Suicidal behaviour [Recovering/Resolving]
  - Hypernatraemia [Recovering/Resolving]
  - Toxicity to various agents [Recovering/Resolving]
  - Intentional overdose [Recovering/Resolving]
